FAERS Safety Report 18666294 (Version 3)
Quarter: 2021Q2

REPORT INFORMATION
  Report Type: Report from Study
  Country: US (occurrence: US)
  Receive Date: 20201226
  Receipt Date: 20210413
  Transmission Date: 20210717
  Serious: No
  Sender: FDA-Public Use
  Company Number: NVSC2020US335759

PATIENT
  Sex: Female

DRUGS (1)
  1. ENTRESTO [Suspect]
     Active Substance: SACUBITRIL\VALSARTAN
     Indication: CARDIAC FAILURE CHRONIC
     Dosage: UNK
     Route: 065

REACTIONS (10)
  - Ligament sprain [Unknown]
  - Balance disorder [Unknown]
  - Fall [Unknown]
  - Back disorder [Unknown]
  - Lower limb fracture [Unknown]
  - Arthropathy [Unknown]
  - Rib fracture [Unknown]
  - Limb injury [Unknown]
  - Contusion [Unknown]
  - Joint injury [Unknown]
